FAERS Safety Report 9995310 (Version 1)
Quarter: 2014Q1

REPORT INFORMATION
  Report Type: Spontaneous
  Country: US (occurrence: None)
  Receive Date: 20140307
  Receipt Date: 20140307
  Transmission Date: 20141002
  Serious: Yes (Hospitalization)
  Sender: FDA-Public Use
  Company Number: None

PATIENT
  Age: 75 Year
  Sex: Male
  Weight: 80.74 kg

DRUGS (9)
  1. XARELTO [Suspect]
     Indication: ATRIAL FIBRILLATION
     Route: 048
     Dates: start: 201308
  2. ATENOLOL [Concomitant]
  3. ZOCOR [Concomitant]
  4. LORAZEPAM [Concomitant]
  5. ASPRIN [Concomitant]
  6. ZINC [Concomitant]
  7. MAGNESIUM [Concomitant]
  8. D3 [Concomitant]
  9. COMPLEX B /00653501/ [Concomitant]

REACTIONS (1)
  - Transient ischaemic attack [None]
